FAERS Safety Report 26032798 (Version 1)
Quarter: 2025Q4

REPORT INFORMATION
  Report Type: Spontaneous
  Country: JP (occurrence: JP)
  Receive Date: 20251112
  Receipt Date: 20251112
  Transmission Date: 20260117
  Serious: Yes (Life-Threatening, Hospitalization, Other)
  Sender: PHARMOBEDIENT CONSULTING, LLC
  Company Number: JP-Pharmobedient-000458

PATIENT
  Age: 26 Year
  Sex: Female
  Weight: 0 kg

DRUGS (1)
  1. LAMOTRIGINE [Suspect]
     Active Substance: LAMOTRIGINE
     Indication: Suicide attempt
     Dosage: EMPTY PACKAGE OF 2000 MG WAS FOUND

REACTIONS (6)
  - Generalised tonic-clonic seizure [Recovered/Resolved]
  - Toxicity to various agents [Recovered/Resolved]
  - Ventricular tachycardia [Unknown]
  - Torsade de pointes [Unknown]
  - Cardiac arrest [Unknown]
  - Intentional overdose [Recovered/Resolved]
